FAERS Safety Report 6052970-6 (Version None)
Quarter: 2009Q1

REPORT INFORMATION
  Report Type: 
  Country: None (occurrence: None)
  Receive Date: 20090127
  Receipt Date: 20081015
  Transmission Date: 20090719
  Serious: No
  Sender: FDA-Public Use
  Company Number: US-ABBOTT-08P-163-0481890-00

PATIENT
  Sex: Male
  Weight: 74.456 kg

DRUGS (8)
  1. LUPRON DEPOT [Suspect]
     Indication: PROSTATE CANCER
     Dosage: 22.5MG Q 3MONTHS
     Route: 030
     Dates: start: 20081010
  2. LUPRON DEPOT [Suspect]
     Dosage: 7.5 MG (1ST DOSE ONCE FOR 30 DAY)
     Route: 030
  3. ATORVASTATIN CALCIUM [Concomitant]
     Indication: DRUG USE FOR UNKNOWN INDICATION
     Route: 048
  4. ALTAC [Concomitant]
     Indication: DRUG USE FOR UNKNOWN INDICATION
     Route: 048
  5. MULTI-VITAMIN [Concomitant]
     Indication: DRUG USE FOR UNKNOWN INDICATION
     Route: 048
  6. FOLIC ACID [Concomitant]
     Indication: DRUG USE FOR UNKNOWN INDICATION
     Route: 048
  7. OMEGA RED FISH OIL [Concomitant]
     Indication: DRUG USE FOR UNKNOWN INDICATION
     Route: 048
  8. ACETYLSALICYLIC ACID SRT [Concomitant]
     Indication: DRUG USE FOR UNKNOWN INDICATION
     Route: 048

REACTIONS (6)
  - DRY MOUTH [None]
  - INJECTION SITE DISCOMFORT [None]
  - INJECTION SITE NODULE [None]
  - INJECTION SITE PAIN [None]
  - MOBILITY DECREASED [None]
  - PYREXIA [None]
